FAERS Safety Report 21928874 (Version 1)
Quarter: 2023Q1

REPORT INFORMATION
  Report Type: Spontaneous
  Country: JP (occurrence: JP)
  Receive Date: 20230131
  Receipt Date: 20230131
  Transmission Date: 20230418
  Serious: Yes (Other)
  Sender: FDA-Public Use
  Company Number: JP-SUN PHARMACEUTICAL INDUSTRIES LTD-2023RR-375587

PATIENT
  Age: 48 Year
  Sex: Male

DRUGS (8)
  1. IRINOTECAN [Suspect]
     Active Substance: IRINOTECAN
     Indication: Thymic carcinoma
     Dosage: UNK
     Route: 065
     Dates: start: 201908, end: 202109
  2. GEMCITABINE [Suspect]
     Active Substance: GEMCITABINE
     Indication: Thymic carcinoma
     Dosage: UNK
     Route: 065
     Dates: start: 201908, end: 202109
  3. LENVATINIB [Suspect]
     Active Substance: LENVATINIB
     Indication: Thymic carcinoma
     Dosage: 24 MILLIGRAM, DAILY
     Route: 065
     Dates: start: 201710
  4. LENVATINIB [Suspect]
     Active Substance: LENVATINIB
     Dosage: 10 MILLIGRAM, DAILY
     Route: 065
  5. DOCETAXEL [Suspect]
     Active Substance: DOCETAXEL
     Indication: Thymic carcinoma
     Dosage: UNK
     Route: 065
     Dates: start: 201908, end: 202109
  6. AMRUBICIN [Suspect]
     Active Substance: AMRUBICIN
     Indication: Thymic carcinoma
     Dosage: UNK
     Route: 065
     Dates: start: 201908, end: 202109
  7. VINORELBINE [Suspect]
     Active Substance: VINORELBINE TARTRATE
     Indication: Thymic carcinoma
     Dosage: UNK
     Route: 065
     Dates: start: 201908, end: 202109
  8. TS-1 [Suspect]
     Active Substance: GIMERACIL\OTERACIL\TEGAFUR
     Indication: Thymic carcinoma
     Dosage: UNK
     Route: 065

REACTIONS (3)
  - Disease progression [Unknown]
  - Fatigue [Unknown]
  - Palmar-plantar erythrodysaesthesia syndrome [Unknown]
